FAERS Safety Report 4963470-6 (Version None)
Quarter: 2006Q2

REPORT INFORMATION
  Report Type: 
  Country: None (occurrence: None)
  Receive Date: 20060404
  Receipt Date: 20060404
  Transmission Date: 20061013
  Serious: Yes (Hospitalization)
  Sender: FDA-Public Use
  Company Number: None

PATIENT
  Age: 65 Year
  Sex: Male
  Weight: 65.318 kg

DRUGS (1)
  1. GATIFLOXACIN [Suspect]
     Dosage: 400 MG PO X 1 THEN 200 MG QD X 4 DAYS
     Route: 048
     Dates: start: 20060124, end: 20060128

REACTIONS (1)
  - DIARRHOEA [None]
